FAERS Safety Report 4953928-8 (Version None)
Quarter: 2006Q1

REPORT INFORMATION
  Report Type: 
  Country: None (occurrence: None)
  Receive Date: 20060327
  Receipt Date: 20060313
  Transmission Date: 20060701
  Serious: Yes (Hospitalization)
  Sender: FDA-Public Use
  Company Number: IT-JNJFOC-20060204718

PATIENT
  Age: 73 Year
  Sex: Female

DRUGS (6)
  1. CONTRAMAL [Suspect]
     Indication: BACK PAIN
     Route: 048
  2. RIZEN [Concomitant]
     Indication: BACK PAIN
  3. IBUSTRIN [Concomitant]
  4. MODURETIC 5-50 [Concomitant]
  5. MODURETIC 5-50 [Concomitant]
  6. RANITIDINE [Concomitant]
     Route: 065

REACTIONS (3)
  - ANGIONEUROTIC OEDEMA [None]
  - DYSPHAGIA [None]
  - PHARYNGEAL ERYTHEMA [None]
